FAERS Safety Report 8426251-7 (Version None)
Quarter: 2012Q2

REPORT INFORMATION
  Report Type: 
  Country: None (occurrence: None)
  Receive Date: 20120517
  Receipt Date: 20120503
  Transmission Date: 20120825
  Serious: Yes (Other)
  Sender: FDA-Public Use
  Company Number: AEGBR201200255

PATIENT

DRUGS (5)
  1. IMMUNE GLOBULIN INTRAVENOUS (HUMAN) [Suspect]
     Indication: PRODUCT USED FOR UNKNOWN INDICATION
     Dosage: TRPL
     Route: 064
  2. CYCLOGEST (PROGESTERONE) [Concomitant]
  3. PREDNISOLONE [Concomitant]
  4. INTRALIPID 30% [Suspect]
     Indication: PARENTERAL NUTRITION
     Dosage: TRPL
     Route: 064
  5. ASPIRIN [Concomitant]

REACTIONS (4)
  - MATERNAL DRUGS AFFECTING FOETUS [None]
  - FOETAL DEATH [None]
  - FOETAL GROWTH RESTRICTION [None]
  - PREMATURE DELIVERY [None]
